FAERS Safety Report 7530679-7 (Version None)
Quarter: 2011Q2

REPORT INFORMATION
  Report Type: 
  Country: None (occurrence: None)
  Receive Date: 20110607
  Receipt Date: 20110526
  Transmission Date: 20111010
  Serious: Yes (Death, Other)
  Sender: FDA-Public Use
  Company Number: US-AMGEN-US345837

PATIENT
  Age: 56 Year
  Sex: Male
  Weight: 150 kg

DRUGS (18)
  1. NPLATE [Suspect]
     Dates: start: 20081031, end: 20090421
  2. ZOLOFT [Concomitant]
     Dosage: UNK UNK, UNK
     Dates: start: 20090224, end: 20090423
  3. CARVEDILOL [Concomitant]
     Dosage: UNK UNK, UNK
     Dates: start: 20080805, end: 20090423
  4. DOCUSATE [Concomitant]
     Dosage: UNK
  5. LORATADINE [Concomitant]
     Dosage: UNK UNK, UNK
     Dates: start: 20080805, end: 20090423
  6. MULTIVITAMIN                       /00097801/ [Concomitant]
     Dosage: UNK
  7. CROMOLYN SODIUM [Concomitant]
     Dosage: UNK
     Dates: start: 20090403, end: 20090423
  8. SIMVASTATIN [Concomitant]
     Dosage: UNK UNK, UNK
     Dates: start: 20090203, end: 20090423
  9. ZOCOR [Concomitant]
     Dosage: UNK
  10. NPLATE [Suspect]
     Dosage: 6 A?G/KG, UNK
  11. COUMADIN [Concomitant]
     Dosage: UNK
  12. PREDNISONE [Concomitant]
     Dosage: UNK UNK, UNK
     Dates: start: 20090217, end: 20090423
  13. MORPHINE [Concomitant]
     Dosage: UNK
  14. CLARITIN                           /00413701/ [Concomitant]
     Dosage: UNK
  15. EROMYCIN                           /00020901/ [Concomitant]
     Dosage: UNK
  16. NPLATE [Suspect]
     Indication: IDIOPATHIC THROMBOCYTOPENIC PURPURA
     Dosage: 2 A?G/KG, QWK
     Route: 058
     Dates: start: 20081031, end: 20090421
  17. IMATINIB MESYLATE [Concomitant]
     Dosage: UNK
     Dates: start: 20090403, end: 20090423
  18. COREG [Concomitant]
     Dosage: UNK

REACTIONS (4)
  - SUDDEN CARDIAC DEATH [None]
  - MASTOCYTOSIS [None]
  - SUBDURAL HAEMATOMA [None]
  - VENOUS THROMBOSIS LIMB [None]
